FAERS Safety Report 19269350 (Version 4)
Quarter: 2021Q3

REPORT INFORMATION
  Report Type: Spontaneous
  Country: US (occurrence: US)
  Receive Date: 20210517
  Receipt Date: 20210924
  Transmission Date: 20211014
  Serious: No
  Sender: FDA-Public Use
  Company Number: US-ORGANON-O2105USA001064

PATIENT
  Age: 20 Year
  Sex: Female
  Weight: 101.68 kg

DRUGS (2)
  1. NEXPLANON [Concomitant]
     Active Substance: ETONOGESTREL
     Dosage: 1 IMPLANT
     Route: 059
     Dates: start: 20180512, end: 20210511
  2. NEXPLANON [Suspect]
     Active Substance: ETONOGESTREL
     Dosage: 1 DOSAGE FORM; ONE EVERY THREE YEARS IN THE LEFT UPPER ARM
     Dates: start: 20210511, end: 20210511

REACTIONS (3)
  - Device kink [Recovered/Resolved]
  - No adverse event [Unknown]
  - Complication of device insertion [Recovered/Resolved]

NARRATIVE: CASE EVENT DATE: 20210511
